FAERS Safety Report 9892589 (Version 4)
Quarter: 2014Q2

REPORT INFORMATION
  Report Type: Spontaneous
  Country: US (occurrence: US)
  Receive Date: 20140212
  Receipt Date: 20140417
  Transmission Date: 20141212
  Serious: No
  Sender: FDA-Public Use
  Company Number: US-GILEAD-2014-0094415

PATIENT
  Sex: Male

DRUGS (5)
  1. LETAIRIS [Suspect]
     Indication: PRODUCT USED FOR UNKNOWN INDICATION
     Dosage: 10 MG, QD
     Route: 048
     Dates: start: 20140115
  2. CHLORAPREP [Suspect]
     Indication: PRODUCT USED FOR UNKNOWN INDICATION
     Route: 065
  3. REMODULIN [Concomitant]
  4. REVATIO [Concomitant]
  5. COUMADIN                           /00014802/ [Concomitant]

REACTIONS (6)
  - Skin irritation [Unknown]
  - Dry skin [Unknown]
  - Skin fissures [Unknown]
  - Catheter site inflammation [Unknown]
  - Scab [Unknown]
  - Rash [Unknown]
